FAERS Safety Report 6014571-5 (Version None)
Quarter: 2008Q4

REPORT INFORMATION
  Report Type: 
  Country: None (occurrence: None)
  Receive Date: 20081219
  Receipt Date: 20080825
  Transmission Date: 20090506
  Serious: No
  Sender: FDA-Public Use
  Company Number: A0744113A

PATIENT
  Age: 63 Year
  Sex: Male

DRUGS (8)
  1. AVODART [Suspect]
     Indication: BENIGN PROSTATIC HYPERPLASIA
     Dosage: 1CAP PER DAY
     Route: 048
  2. UROXATRAL [Concomitant]
  3. CRESTOR [Concomitant]
  4. COUMADIN [Concomitant]
  5. SOTALOL HCL [Concomitant]
  6. ASPIRIN [Concomitant]
  7. ALOPURINOL [Concomitant]
  8. ALTACE [Concomitant]

REACTIONS (2)
  - BREAST MASS [None]
  - NIPPLE PAIN [None]
